FAERS Safety Report 24421463 (Version 1)
Quarter: 2024Q4

REPORT INFORMATION
  Report Type: Spontaneous
  Country: JP (occurrence: JP)
  Receive Date: 20241010
  Receipt Date: 20241010
  Transmission Date: 20250115
  Serious: Yes (Death, Other)
  Sender: EMD SERONO INC
  Company Number: JP-Merck Healthcare KGaA-2024049278

PATIENT

DRUGS (1)
  1. METGLUCO [Suspect]
     Active Substance: METFORMIN HYDROCHLORIDE
     Indication: Product used for unknown indication

REACTIONS (3)
  - Death [Fatal]
  - Diarrhoea [Unknown]
  - Vomiting [Unknown]
